FAERS Safety Report 5228055-5 (Version None)
Quarter: 2007Q1

REPORT INFORMATION
  Report Type: 
  Country: None (occurrence: None)
  Receive Date: 20061201
  Receipt Date: 20060809
  Transmission Date: 20070707
  Serious: No
  Sender: FDA-Public Use
  Company Number: US200608001876

PATIENT
  Sex: Male

DRUGS (4)
  1. ALIMTA [Suspect]
     Indication: LUNG NEOPLASM MALIGNANT
     Dosage: INTRAVENOUS
     Route: 042
  2. FOLIC ACID [Concomitant]
  3. VITAMIN B12 [Concomitant]
  4. DECADRON [Concomitant]

REACTIONS (3)
  - RASH [None]
  - RETCHING [None]
  - SKIN DISCOLOURATION [None]
